FAERS Safety Report 23819881 (Version 1)
Quarter: 2024Q2

REPORT INFORMATION
  Report Type: Report from Study
  Country: US (occurrence: US)
  Receive Date: 20240506
  Receipt Date: 20240506
  Transmission Date: 20240716
  Serious: Yes (Other)
  Sender: FDA-Public Use
  Company Number: US-UCBSA-2023055836

PATIENT
  Age: 31 Year
  Sex: Female
  Weight: 68.03 kg

DRUGS (1)
  1. CERTOLIZUMAB PEGOL [Suspect]
     Active Substance: CERTOLIZUMAB PEGOL
     Indication: Psoriasis
     Dosage: 400 MILLIGRAM, EV 2 WEEKS(QOW)
     Route: 058
     Dates: start: 20221212, end: 20240127

REACTIONS (12)
  - Gestational diabetes [Unknown]
  - Maternal exposure before pregnancy [Unknown]
  - Maternal exposure during pregnancy [Unknown]
  - Injection site pain [Not Recovered/Not Resolved]
  - Injection site rash [Unknown]
  - Injection site bruising [Unknown]
  - Cyst [Not Recovered/Not Resolved]
  - Furuncle [Not Recovered/Not Resolved]
  - Psoriasis [Unknown]
  - Inappropriate schedule of product administration [Unknown]
  - Device difficult to use [Unknown]
  - Product physical consistency issue [Unknown]

NARRATIVE: CASE EVENT DATE: 20230101
